FAERS Safety Report 25835179 (Version 1)
Quarter: 2025Q3

REPORT INFORMATION
  Report Type: Spontaneous
  Country: CN (occurrence: CN)
  Receive Date: 20250923
  Receipt Date: 20250923
  Transmission Date: 20251021
  Serious: Yes (Other)
  Sender: RANBAXY
  Company Number: CN-SUN PHARMACEUTICAL INDUSTRIES INC-2025R1-527999

PATIENT
  Age: 56 Year
  Sex: Male

DRUGS (1)
  1. CLOBETASOL [Suspect]
     Active Substance: CLOBETASOL
     Indication: Ulcer
     Route: 061

REACTIONS (3)
  - Dermatitis contact [Unknown]
  - Disease progression [Unknown]
  - Intentional product misuse [Unknown]
